FAERS Safety Report 17681294 (Version 1)
Quarter: 2020Q2

REPORT INFORMATION
  Report Type: Spontaneous
  Country: RU (occurrence: RU)
  Receive Date: 20200417
  Receipt Date: 20200417
  Transmission Date: 20200714
  Serious: Yes (Other)
  Sender: FDA-Public Use
  Company Number: RU-BAYER-2020-058344

PATIENT
  Sex: Female

DRUGS (1)
  1. ANGELIQ [Suspect]
     Active Substance: DROSPIRENONE\ESTRADIOL
     Indication: HOT FLUSH
     Dosage: 1 DF, QD

REACTIONS (1)
  - Ovarian cancer [None]
